FAERS Safety Report 4442231-0 (Version None)
Quarter: 2004Q3

REPORT INFORMATION
  Report Type: 
  Country: None (occurrence: None)
  Receive Date: 20040903
  Receipt Date: 20040803
  Transmission Date: 20050211
  Serious: Yes (Other)
  Sender: FDA-Public Use
  Company Number: 2004UW14909

PATIENT
  Age: 57 Year
  Sex: Male
  Weight: 79.3795 kg

DRUGS (4)
  1. CRESTOR [Suspect]
     Indication: BLOOD CHOLESTEROL INCREASED
     Dosage: 40 MG QD PO
     Route: 048
  2. ZETIA [Concomitant]
  3. FLOMAX [Concomitant]
  4. DETROL [Concomitant]

REACTIONS (5)
  - ABDOMINAL DISTENSION [None]
  - CONTUSION [None]
  - DEPRESSION [None]
  - PAIN [None]
  - PROTEIN URINE PRESENT [None]
